FAERS Safety Report 7451447-0 (Version None)
Quarter: 2011Q2

REPORT INFORMATION
  Report Type: 
  Country: None (occurrence: None)
  Receive Date: 20110502
  Receipt Date: 20110425
  Transmission Date: 20111010
  Serious: Yes (Other)
  Sender: FDA-Public Use
  Company Number: A0911509A

PATIENT
  Age: 52 Year
  Sex: Female
  Weight: 53.2 kg

DRUGS (19)
  1. CYMBALTA [Concomitant]
  2. XANAX [Concomitant]
  3. CELEBREX [Concomitant]
  4. UNKNOWN [Concomitant]
  5. CIPRO [Concomitant]
  6. ICAR-C [Concomitant]
  7. LORAZEPAM [Concomitant]
  8. VOTRIENT [Suspect]
     Dosage: 400MG TWICE PER DAY
  9. XYZAL [Concomitant]
  10. LEVAQUIN [Concomitant]
  11. BENADRYL [Concomitant]
  12. ADVIL LIQUI-GELS [Concomitant]
  13. UNKNOWN [Concomitant]
  14. ZOFRAN [Concomitant]
  15. XOPENEX [Concomitant]
  16. LASIX [Concomitant]
  17. RETIN-A [Concomitant]
  18. PREVACID [Concomitant]
  19. HYDROCAPS [Concomitant]

REACTIONS (1)
  - BLINDNESS TRANSIENT [None]
